FAERS Safety Report 24146407 (Version 1)
Quarter: 2024Q3

REPORT INFORMATION
  Report Type: Spontaneous
  Country: US (occurrence: None)
  Receive Date: 20240725
  Receipt Date: 20240725
  Transmission Date: 20241016
  Serious: Yes (Other)
  Sender: Public
  Company Number: None

PATIENT
  Age: 64 Year
  Sex: Female
  Weight: 68.04 kg

DRUGS (5)
  1. DIETARY SUPPLEMENT [Suspect]
     Active Substance: DIETARY SUPPLEMENT
     Indication: Arthralgia
     Dosage: OTHER QUANTITY : 1 CAPSULE;?FREQUENCY : DAILY;?
     Route: 048
     Dates: start: 20231015, end: 20240623
  2. DICLOFENAC [Suspect]
     Active Substance: DICLOFENAC
  3. OMEPRAZOLE [Suspect]
     Active Substance: OMEPRAZOLE
  4. ZETIA [Suspect]
     Active Substance: EZETIMIBE
  5. ZEPBOUND [Suspect]
     Active Substance: TIRZEPATIDE

REACTIONS (10)
  - Diarrhoea [None]
  - Drug withdrawal syndrome [None]
  - Fatigue [None]
  - Nausea [None]
  - Headache [None]
  - Gastrointestinal disorder [None]
  - Product formulation issue [None]
  - Product label issue [None]
  - Therapeutic response unexpected [None]
  - Product advertising issue [None]

NARRATIVE: CASE EVENT DATE: 20240628
